FAERS Safety Report 11135426 (Version 1)
Quarter: 2015Q2

REPORT INFORMATION
  Report Type: Spontaneous
  Country: US (occurrence: None)
  Receive Date: 20150522
  Receipt Date: 20150522
  Transmission Date: 20150821
  Serious: No
  Sender: FDA-Public Use
  Company Number: None

PATIENT
  Age: 45 Year
  Sex: Male
  Weight: 90.72 kg

DRUGS (4)
  1. ASPIRIN. [Concomitant]
     Active Substance: ASPIRIN
  2. COPAXONE [Suspect]
     Active Substance: GLATIRAMER ACETATE
     Indication: MULTIPLE SCLEROSIS
     Dosage: GIVEN INTO/UNDER THE SKIN
     Route: 058
  3. MOTRIN [Concomitant]
     Active Substance: IBUPROFEN
  4. TYLENOL [Concomitant]
     Active Substance: ACETAMINOPHEN

REACTIONS (8)
  - Headache [None]
  - Nausea [None]
  - Erythema [None]
  - Medical device complication [None]
  - Chills [None]
  - Back pain [None]
  - Nasopharyngitis [None]
  - Sinus disorder [None]

NARRATIVE: CASE EVENT DATE: 20150413
